FAERS Safety Report 9415061 (Version 1)
Quarter: 2013Q3

REPORT INFORMATION
  Report Type: Spontaneous
  Country: PT (occurrence: PT)
  Receive Date: 20130723
  Receipt Date: 20130723
  Transmission Date: 20140515
  Serious: Yes (Other)
  Sender: FDA-Public Use
  Company Number: PT-WATSON-2013-12634

PATIENT
  Age: 9 Year
  Sex: Female

DRUGS (4)
  1. CYCLOSPORINE (UNKNOWN) [Suspect]
     Indication: DERMATOMYOSITIS
     Dosage: UNK
     Route: 065
  2. METHOTREXATE [Concomitant]
     Indication: DERMATOMYOSITIS
     Dosage: UNK
     Route: 065
  3. PREDNISOLONE [Concomitant]
     Indication: DERMATOMYOSITIS
     Dosage: UNK
     Route: 065
  4. IBUPROFEN [Concomitant]
     Indication: MYOSITIS
     Dosage: UNK
     Route: 065

REACTIONS (1)
  - Haemolytic anaemia [Recovering/Resolving]
